FAERS Safety Report 7816551-3 (Version None)
Quarter: 2011Q4

REPORT INFORMATION
  Report Type: 
  Country: None (occurrence: None)
  Receive Date: 20111017
  Receipt Date: 20111011
  Transmission Date: 20120403
  Serious: Yes (Hospitalization)
  Sender: FDA-Public Use
  Company Number: NO-PFIZER INC-2011243195

PATIENT
  Age: 61 Year
  Sex: Male

DRUGS (3)
  1. SUTENT [Suspect]
     Indication: RENAL CANCER
     Dosage: 50 MG, UNK
     Dates: start: 20110211, end: 20110301
  2. ADALAT [Concomitant]
     Indication: BLOOD PRESSURE
     Dosage: 30 MG, 1X/DAY
  3. LISINOPRIL [Concomitant]
     Indication: BLOOD PRESSURE
     Dosage: 20 MG, 1X/DAY

REACTIONS (4)
  - RENAL FAILURE [None]
  - SEPSIS [None]
  - PYREXIA [None]
  - LEUKOPENIA [None]
